FAERS Safety Report 25641045 (Version 3)
Quarter: 2025Q4

REPORT INFORMATION
  Report Type: Spontaneous
  Country: US (occurrence: US)
  Receive Date: 20250804
  Receipt Date: 20251106
  Transmission Date: 20260117
  Serious: Yes (Hospitalization, Other)
  Sender: SANOFI AVENTIS
  Company Number: US-SA-2025SA226785

PATIENT
  Age: 83 Year
  Sex: Female
  Weight: 101 kg

DRUGS (1)
  1. DUPIXENT [Suspect]
     Active Substance: DUPILUMAB
     Indication: Asthma
     Dosage: 300 MG, QOW
     Route: 058
     Dates: start: 20250605, end: 20251008

REACTIONS (7)
  - Pericardial effusion [Recovering/Resolving]
  - Pericarditis [Unknown]
  - Malignant pleural effusion [Unknown]
  - Iatrogenic infection [Unknown]
  - Adverse drug reaction [Unknown]
  - Exposure via skin contact [Unknown]
  - Accidental exposure to product [Unknown]

NARRATIVE: CASE EVENT DATE: 20250101
